FAERS Safety Report 23351240 (Version 2)
Quarter: 2024Q1

REPORT INFORMATION
  Report Type: Spontaneous
  Country: JP (occurrence: JP)
  Receive Date: 20231229
  Receipt Date: 20240304
  Transmission Date: 20240410
  Serious: Yes (Hospitalization, Other)
  Sender: FDA-Public Use
  Company Number: JP-Indivior Limited-INDV-142384-2023

PATIENT

DRUGS (3)
  1. BUPRENORPHINE HYDROCHLORIDE [Suspect]
     Active Substance: BUPRENORPHINE HYDROCHLORIDE
     Indication: Arthralgia
     Dosage: 0.2 MILLIGRAM, UNKNOWN
     Route: 065
  2. BUPRENORPHINE HYDROCHLORIDE [Suspect]
     Active Substance: BUPRENORPHINE HYDROCHLORIDE
     Indication: Abdominal pain
  3. EMICIZUMAB [Concomitant]
     Active Substance: EMICIZUMAB
     Indication: Factor VIII deficiency
     Dosage: UNK
     Route: 065

REACTIONS (5)
  - Haemarthrosis [Unknown]
  - Haematoma muscle [Unknown]
  - Drug dependence [Unknown]
  - Off label use [Recovered/Resolved]
  - Drug hypersensitivity [Unknown]
